FAERS Safety Report 8143574-X (Version None)
Quarter: 2012Q1

REPORT INFORMATION
  Report Type: 
  Country: None (occurrence: None)
  Receive Date: 20120217
  Receipt Date: 20111102
  Transmission Date: 20120608
  Serious: No
  Sender: FDA-Public Use
  Company Number: US-GLAXOSMITHKLINE-A0951920A

PATIENT
  Age: 61 Year
  Sex: Female

DRUGS (9)
  1. NEXIUM [Concomitant]
  2. GABAPENTIN [Concomitant]
  3. LISINOPRIL [Concomitant]
  4. VOTRIENT [Suspect]
     Indication: RENAL CANCER
     Dosage: 400MG PER DAY
     Route: 048
     Dates: start: 20110611
  5. PERCOCET [Concomitant]
  6. LEXAPRO [Concomitant]
  7. LOPID [Concomitant]
  8. SYNTHROID [Concomitant]
  9. FENTANYL [Concomitant]

REACTIONS (1)
  - HOT FLUSH [None]
